FAERS Safety Report 12265312 (Version 4)
Quarter: 2022Q4

REPORT INFORMATION
  Report Type: Report from Study
  Country: US (occurrence: US)
  Receive Date: 20160413
  Receipt Date: 20221110
  Transmission Date: 20230112
  Serious: Yes (Death, Hospitalization, Other)
  Sender: FDA-Public Use
  Company Number: US-SHIRE-US201604300

PATIENT
  Age: 8 Year
  Sex: Male
  Weight: 22.676 kg

DRUGS (1)
  1. IDURSULFASE [Suspect]
     Active Substance: IDURSULFASE
     Indication: Mucopolysaccharidosis II
     Dosage: 12 MILLIGRAM, 1/WEEK
     Route: 041
     Dates: start: 20110930

REACTIONS (8)
  - Death [Fatal]
  - Fall [Recovered/Resolved]
  - Neck injury [Unknown]
  - Concussion [Recovered/Resolved with Sequelae]
  - Loss of consciousness [Recovered/Resolved]
  - Drooling [Unknown]
  - Arthropathy [Unknown]
  - Pyrexia [Recovered/Resolved]

NARRATIVE: CASE EVENT DATE: 20160301
